FAERS Safety Report 17491998 (Version 1)
Quarter: 2020Q1

REPORT INFORMATION
  Report Type: Spontaneous
  Country: DE (occurrence: DE)
  Receive Date: 20200303
  Receipt Date: 20200303
  Transmission Date: 20200409
  Serious: Yes (Death, Life-Threatening, Other)
  Sender: FDA-Public Use
  Company Number: NVSC2020DE060455

PATIENT
  Age: 73 Year
  Sex: Male
  Weight: 75 kg

DRUGS (1)
  1. ENTRESTO [Suspect]
     Active Substance: SACUBITRIL\VALSARTAN
     Indication: EJECTION FRACTION DECREASED
     Dosage: 2 DF, QD (2 DF DOSAGE FORM EVERY DAYS 2 SEPARATED DOSES)
     Route: 048
     Dates: start: 20191104, end: 20191117

REACTIONS (2)
  - Pleural effusion [Fatal]
  - Acute kidney injury [Fatal]
